FAERS Safety Report 8068153-4 (Version None)
Quarter: 2012Q1

REPORT INFORMATION
  Report Type: 
  Country: None (occurrence: None)
  Receive Date: 20120124
  Receipt Date: 20110829
  Transmission Date: 20120608
  Serious: No
  Sender: FDA-Public Use
  Company Number: US-AMGEN-USASP2011036566

PATIENT
  Sex: Female
  Weight: 65.306 kg

DRUGS (8)
  1. CALCIUM [Concomitant]
  2. PROLIA [Suspect]
     Dosage: 60 MG, Q6MO
     Dates: start: 20101209
  3. RAMIPRIL [Concomitant]
  4. VITAMIN D [Concomitant]
  5. SIMVASTATIN [Concomitant]
  6. PROLIA [Suspect]
     Indication: OSTEOPOROSIS POSTMENOPAUSAL
     Dosage: 60 MG, Q6MO
     Dates: start: 20110609
  7. TIZANIDINE HCL [Concomitant]
  8. AGGRENOX [Concomitant]

REACTIONS (2)
  - PAIN [None]
  - RASH ERYTHEMATOUS [None]
